FAERS Safety Report 7817161-4 (Version None)
Quarter: 2011Q4

REPORT INFORMATION
  Report Type: 
  Country: None (occurrence: None)
  Receive Date: 20111017
  Receipt Date: 20111017
  Transmission Date: 20120403
  Serious: Yes (Other)
  Sender: FDA-Public Use
  Company Number: None

PATIENT
  Age: 40 Year
  Sex: Female
  Weight: 66.678 kg

DRUGS (2)
  1. SINGULAIR [Suspect]
     Indication: MULTIPLE ALLERGIES
  2. ALLEGRA [Concomitant]

REACTIONS (11)
  - ABDOMINAL DISCOMFORT [None]
  - HEART RATE IRREGULAR [None]
  - DEPRESSION [None]
  - BACK PAIN [None]
  - RECTAL HAEMORRHAGE [None]
  - PAIN IN EXTREMITY [None]
  - SENSATION OF PRESSURE [None]
  - CHEST PAIN [None]
  - LOCALISED OEDEMA [None]
  - ANXIETY [None]
  - ENTERITIS INFECTIOUS [None]
